FAERS Safety Report 4530365-1 (Version None)
Quarter: 2004Q4

REPORT INFORMATION
  Report Type: 
  Country: None (occurrence: None)
  Receive Date: 20041217
  Receipt Date: 20041122
  Transmission Date: 20050328
  Serious: Yes (Death)
  Sender: FDA-Public Use
  Company Number: PHHO2004ES16531

PATIENT
  Age: 64 Year
  Sex: Male

DRUGS (3)
  1. PREDNISONE [Suspect]
     Indication: HEART TRANSPLANT
     Dosage: 15 MG, QD
  2. NEORAL [Suspect]
     Indication: HEART TRANSPLANT
     Dosage: 125 MG, BID
  3. CERL080A [Suspect]
     Indication: HEART TRANSPLANT
     Dosage: UNK, BID
     Route: 048
     Dates: start: 20031128

REACTIONS (4)
  - FEELING ABNORMAL [None]
  - PNEUMONIA [None]
  - PRODUCTIVE COUGH [None]
  - PYREXIA [None]
